FAERS Safety Report 4591553-1 (Version None)
Quarter: 2005Q1

REPORT INFORMATION
  Report Type: 
  Country: None (occurrence: None)
  Receive Date: 20050222
  Receipt Date: 20050208
  Transmission Date: 20050727
  Serious: Yes (Other)
  Sender: FDA-Public Use
  Company Number: 2004112247

PATIENT
  Age: 74 Year
  Sex: Female
  Weight: 65.318 kg

DRUGS (14)
  1. NEURONTIN [Suspect]
     Indication: TRIGEMINAL NEURALGIA
     Dosage: 900 MG (3 IN 1 D), UNKNOWN
     Route: 065
     Dates: start: 20030519, end: 20040701
  2. OXCARBAZEPINE (OXCARBAZEPINE) [Suspect]
     Indication: ILL-DEFINED DISORDER
     Dosage: UNKNOWN
     Route: 065
  3. ALENDRONATE SODIUM [Concomitant]
  4. THYROID TAB [Concomitant]
  5. NAPROXEN SODIUM [Concomitant]
  6. CALCIUM CARBONATE (CALCIUM CARBONATE) [Concomitant]
  7. ASPIRIN [Concomitant]
  8. CENTRUM SILVER (ASCORBIC ACID, CALCIUM, MINERALS NOS, RETINOL, TOCOPHE [Concomitant]
  9. FISH OIL (FISH OIL) [Concomitant]
  10. ATORVASTATIN (ATORVASTATIN) [Concomitant]
  11. CARBAMAZEPINE [Concomitant]
  12. PHENYTOIN SODIUM [Concomitant]
  13. CARBAMAZEPINE [Concomitant]
  14. PHENYTOIN [Concomitant]

REACTIONS (23)
  - ANKLE FRACTURE [None]
  - ARTHRITIS [None]
  - ASTHENIA [None]
  - BALANCE DISORDER [None]
  - CONFUSIONAL STATE [None]
  - DEPRESSION [None]
  - DIZZINESS [None]
  - DRUG INEFFECTIVE [None]
  - DYSKINESIA [None]
  - FALL [None]
  - FEELING ABNORMAL [None]
  - FEELING DRUNK [None]
  - HEAD INJURY [None]
  - HEADACHE [None]
  - HYPOTONIA [None]
  - INFLUENZA [None]
  - INSOMNIA [None]
  - MEMORY IMPAIRMENT [None]
  - MENTAL IMPAIRMENT [None]
  - MUSCLE TWITCHING [None]
  - NEUROPATHY PERIPHERAL [None]
  - SUBDURAL HAEMORRHAGE [None]
  - VISION BLURRED [None]
